FAERS Safety Report 11633331 (Version 1)
Quarter: 2015Q4

REPORT INFORMATION
  Report Type: Spontaneous
  Country: US (occurrence: US)
  Receive Date: 20151015
  Receipt Date: 20151015
  Transmission Date: 20160304
  Serious: Yes (Other)
  Sender: FDA-Public Use
  Company Number: US-PFIZER INC-2015341494

PATIENT
  Sex: Female

DRUGS (2)
  1. GABAPENTIN. [Suspect]
     Active Substance: GABAPENTIN
     Dosage: UNK
     Route: 048
  2. NEURONTIN [Concomitant]
     Active Substance: GABAPENTIN
     Dosage: UNK
     Route: 048
     Dates: start: 2002, end: 2012

REACTIONS (7)
  - Product physical consistency issue [Unknown]
  - Abdominal discomfort [Unknown]
  - Malaise [Unknown]
  - Product odour abnormal [Unknown]
  - Large intestine perforation [Unknown]
  - Dyspepsia [Unknown]
  - Vomiting [Unknown]
